FAERS Safety Report 15353425 (Version 5)
Quarter: 2019Q4

REPORT INFORMATION
  Report Type: Report from Study
  Country: US (occurrence: US)
  Receive Date: 20180905
  Receipt Date: 20191104
  Transmission Date: 20200122
  Serious: Yes (Other)
  Sender: FDA-Public Use
  Company Number: PHEH2018US036280

PATIENT
  Sex: Female

DRUGS (2)
  1. AFINITOR [Suspect]
     Active Substance: EVEROLIMUS
     Indication: ANGIOMYOLIPOMA
     Dosage: 5 MG, QD
     Route: 048
     Dates: start: 20120515
  2. AFINITOR [Suspect]
     Active Substance: EVEROLIMUS
     Dosage: 5MG M,F,F,SUN
     Route: 065

REACTIONS (4)
  - Fatigue [Not Recovered/Not Resolved]
  - Rash [Recovering/Resolving]
  - Renal impairment [Not Recovered/Not Resolved]
  - Headache [Not Recovered/Not Resolved]
